FAERS Safety Report 5633418-X (Version None)
Quarter: 2008Q1

REPORT INFORMATION
  Report Type: 
  Country: None (occurrence: None)
  Receive Date: 20080221
  Receipt Date: 20080219
  Transmission Date: 20080703
  Serious: Yes (Hospitalization)
  Sender: FDA-Public Use
  Company Number: FR-TEVA-165815USA

PATIENT
  Sex: Female

DRUGS (4)
  1. PIMOZIDE TABLETS [Suspect]
     Route: 048
     Dates: start: 20050601, end: 20071123
  2. SERTRALINE [Concomitant]
     Route: 048
     Dates: start: 20050601
  3. TRIHEXYPHENIDYL HYDROCHLORIDE [Concomitant]
     Route: 048
     Dates: start: 20050601
  4. NORETHINDRONE ACETATE [Concomitant]
     Route: 048
     Dates: start: 20050601

REACTIONS (3)
  - BLOOD CREATINE PHOSPHOKINASE INCREASED [None]
  - HYPONATRAEMIA [None]
  - RHABDOMYOLYSIS [None]
